FAERS Safety Report 12054224 (Version 2)
Quarter: 2016Q3

REPORT INFORMATION
  Report Type: Spontaneous
  Country: US (occurrence: US)
  Receive Date: 20160209
  Receipt Date: 20160825
  Transmission Date: 20161109
  Serious: Yes (Other)
  Sender: FDA-Public Use
  Company Number: US-PFIZER INC-2016067466

PATIENT
  Age: 57 Year
  Sex: Female
  Weight: 66.4 kg

DRUGS (2)
  1. LYRICA [Suspect]
     Active Substance: PREGABALIN
     Indication: PAIN
     Dosage: UNK UNK, DAILY
  2. LYRICA [Suspect]
     Active Substance: PREGABALIN
     Dosage: 600 MG, DAILY (150MG IN MORNING AND EVENING, 300MG AT BED TIME)
     Route: 048
     Dates: start: 20160804

REACTIONS (3)
  - Malaise [Unknown]
  - Gastroenteritis viral [Recovering/Resolving]
  - Nephrolithiasis [Unknown]
